FAERS Safety Report 15573914 (Version 13)
Quarter: 2024Q1

REPORT INFORMATION
  Report Type: Other
  Country: DE (occurrence: None)
  Receive Date: 20181101
  Receipt Date: 20240325
  Transmission Date: 20240410
  Serious: No
  Sender: FDA-Public Use
  Company Number: DE-ROCHE-2194970

PATIENT
  Age: 42 Year
  Sex: Female

DRUGS (6)
  1. OCREVUS [Suspect]
     Active Substance: OCRELIZUMAB
     Indication: Relapsing-remitting multiple sclerosis
     Dosage: 600 MG 175 DAYS
     Route: 042
     Dates: start: 20180829, end: 20180829
  2. OCREVUS [Suspect]
     Active Substance: OCRELIZUMAB
     Route: 042
     Dates: start: 20180911, end: 20180911
  3. OCREVUS [Suspect]
     Active Substance: OCRELIZUMAB
     Dosage: MAINTENANCE DOSE WAS REPORTED AS 300 MG INSTEAD OF 600 MG.
     Route: 042
     Dates: start: 20190314
  4. OCREVUS [Suspect]
     Active Substance: OCRELIZUMAB
     Route: 042
     Dates: start: 20200917
  5. OCREVUS [Suspect]
     Active Substance: OCRELIZUMAB
     Dosage: FIFTH MAINTENANCE DOSE
     Route: 042
     Dates: start: 20210422
  6. CETIRIZINE HYDROCHLORIDE [Suspect]
     Active Substance: CETIRIZINE HYDROCHLORIDE
     Indication: Seasonal allergy
     Route: 065

REACTIONS (18)
  - Palpitations [Recovered/Resolved]
  - Hot flush [Recovered/Resolved]
  - Alopecia [Recovered/Resolved]
  - Pustule [Recovered/Resolved]
  - Fatigue [Not Recovered/Not Resolved]
  - Pyrexia [Recovered/Resolved]
  - Product prescribing error [Unknown]
  - Nasopharyngitis [Recovered/Resolved]
  - Blood pressure increased [Recovered/Resolved]
  - Dyspnoea [Recovered/Resolved]
  - Fatigue [Recovered/Resolved]
  - Infection susceptibility increased [Recovered/Resolved]
  - Fatigue [Not Recovered/Not Resolved]
  - Hypoaesthesia [Recovering/Resolving]
  - Paraesthesia [Recovering/Resolving]
  - Gastrointestinal infection [Recovered/Resolved]
  - Bronchitis [Recovered/Resolved]
  - Body temperature increased [Recovered/Resolved]

NARRATIVE: CASE EVENT DATE: 20180829
